FAERS Safety Report 21308978 (Version 2)
Quarter: 2022Q3

REPORT INFORMATION
  Report Type: Spontaneous
  Country: CO (occurrence: CO)
  Receive Date: 20220908
  Receipt Date: 20220914
  Transmission Date: 20221026
  Serious: Yes (Other)
  Sender: FDA-Public Use
  Company Number: CO-BoehringerIngelheim-2022-BI-191202

PATIENT
  Age: 83 Year
  Sex: Male

DRUGS (2)
  1. OFEV [Suspect]
     Active Substance: NINTEDANIB
     Indication: Idiopathic pulmonary fibrosis
     Dates: start: 202107
  2. OFEV [Suspect]
     Active Substance: NINTEDANIB

REACTIONS (5)
  - Diarrhoea [Recovered/Resolved]
  - Dehydration [Recovered/Resolved]
  - Diarrhoea [Recovered/Resolved]
  - Gastritis [Unknown]
  - Diverticulitis [Unknown]

NARRATIVE: CASE EVENT DATE: 20220101
